FAERS Safety Report 12204936 (Version 2)
Quarter: 2016Q1

REPORT INFORMATION
  Report Type: Spontaneous
  Country: US (occurrence: US)
  Receive Date: 20160323
  Receipt Date: 20160331
  Transmission Date: 20160526
  Serious: Yes (Other)
  Sender: FDA-Public Use
  Company Number: US-HORIZON-DUE-0048-2016

PATIENT
  Age: 23 Year
  Sex: Male

DRUGS (5)
  1. HYDROCODONE [Concomitant]
     Active Substance: HYDROCODONE
  2. MEDROL DOSE PACK [Concomitant]
     Active Substance: METHYLPREDNISOLONE
  3. METHOCARBAMOL. [Concomitant]
     Active Substance: METHOCARBAMOL
  4. DUEXIS [Suspect]
     Active Substance: FAMOTIDINE\IBUPROFEN
     Indication: JOINT INJURY
     Dosage: 1 TABLET THREE TIMES DAILY
     Route: 048
     Dates: start: 20151117
  5. TAMIFLU [Concomitant]
     Active Substance: OSELTAMIVIR PHOSPHATE

REACTIONS (3)
  - Off label use [Recovered/Resolved]
  - Pneumonia [Unknown]
  - Asthma [Recovered/Resolved]

NARRATIVE: CASE EVENT DATE: 20151117
